FAERS Safety Report 9261123 (Version 3)
Quarter: 2013Q3

REPORT INFORMATION
  Report Type: Spontaneous
  Country: DE (occurrence: DE)
  Receive Date: 20130429
  Receipt Date: 20130814
  Transmission Date: 20140515
  Serious: Yes (Other)
  Sender: FDA-Public Use
  Company Number: DE-GILEAD-US-CVT-100269

PATIENT
  Age: 60 Year
  Sex: Male

DRUGS (7)
  1. RANEXA [Suspect]
     Indication: ISCHAEMIA
     Dosage: 500 MG, BID
     Route: 048
     Dates: start: 20091015, end: 20100531
  2. RANEXA [Suspect]
     Dosage: 375 MG, BID
     Route: 048
     Dates: start: 20091002, end: 20091015
  3. RAMIPRIL PLUS [Suspect]
     Indication: CARDIAC DISORDER
     Route: 048
  4. ASS [Concomitant]
  5. CARVEDILOL [Concomitant]
  6. INEGY [Concomitant]
  7. PANTOPRAZOLE [Concomitant]

REACTIONS (2)
  - Ageusia [Not Recovered/Not Resolved]
  - Anosmia [Not Recovered/Not Resolved]
